FAERS Safety Report 5096214-0 (Version None)
Quarter: 2006Q3

REPORT INFORMATION
  Report Type: 
  Country: None (occurrence: None)
  Receive Date: 20060905
  Receipt Date: 20060830
  Transmission Date: 20061208
  Serious: Yes (Other)
  Sender: FDA-Public Use
  Company Number: US-JNJFOC-20060900221

PATIENT
  Age: 4 Year
  Sex: Male

DRUGS (7)
  1. REMICADE [Suspect]
  2. REMICADE [Suspect]
  3. REMICADE [Suspect]
     Indication: CROHN'S DISEASE
  4. 6-MP [Suspect]
     Indication: CROHN'S DISEASE
  5. KEFLEX [Concomitant]
     Indication: SKIN INFECTION
  6. STEROIDS [Concomitant]
     Indication: CROHN'S DISEASE
  7. PENTASA [Concomitant]
     Indication: CROHN'S DISEASE

REACTIONS (1)
  - LIVER FUNCTION TEST ABNORMAL [None]
